FAERS Safety Report 5419535-8 (Version None)
Quarter: 2007Q3

REPORT INFORMATION
  Report Type: 
  Country: None (occurrence: None)
  Receive Date: 20070820
  Receipt Date: 20070806
  Transmission Date: 20080115
  Serious: Yes (Death, Hospitalization)
  Sender: FDA-Public Use
  Company Number: FR-ROCHE-495521

PATIENT
  Age: 69 Year
  Sex: Male

DRUGS (3)
  1. GANCICLOVIR SODIUM [Suspect]
     Indication: GLIOMA
     Route: 042
     Dates: start: 20061007, end: 20061020
  2. CEREPRO [Suspect]
     Indication: GLIOMA
     Dosage: SINGLE DOSE.
     Route: 018
     Dates: start: 20061002, end: 20061002
  3. TEMOZOLOMIDE [Concomitant]
     Dosage: ON AN UNSPECIFIED DATE, THE DOSE OF TEMOZOLOMIDE WAS CHANGED FROM 75 MG/M2 DAILY TO 150 MG/M2 5 DAY+
     Dates: start: 20061023

REACTIONS (1)
  - DIABETIC HYPEROSMOLAR COMA [None]
